FAERS Safety Report 8105347-3 (Version None)
Quarter: 2012Q1

REPORT INFORMATION
  Report Type: 
  Country: None (occurrence: None)
  Receive Date: 20120201
  Receipt Date: 20120126
  Transmission Date: 20120608
  Serious: Yes (Hospitalization, Other)
  Sender: FDA-Public Use
  Company Number: PHHY2012KW006603

PATIENT
  Age: 42 Year
  Sex: Female

DRUGS (4)
  1. GILENYA [Suspect]
     Indication: RELAPSING-REMITTING MULTIPLE SCLEROSIS
     Dosage: 0.5 MG, QD
     Route: 048
     Dates: start: 20120124
  2. LYRICA [Concomitant]
  3. NEUROBION                          /00176001/ [Concomitant]
  4. VITAMIN D [Concomitant]
     Dosage: UNK UKN, QW

REACTIONS (1)
  - CHEST DISCOMFORT [None]
